FAERS Safety Report 5491490-4 (Version None)
Quarter: 2007Q4

REPORT INFORMATION
  Report Type: 
  Country: None (occurrence: None)
  Receive Date: 20071022
  Receipt Date: 20071009
  Transmission Date: 20080405
  Serious: Yes (Hospitalization, Disabling, Other)
  Sender: FDA-Public Use
  Company Number: PHMT2007CA01571

PATIENT
  Age: 49 Year
  Sex: Female
  Weight: 70.748 kg

DRUGS (7)
  1. ZELNORM [Suspect]
     Indication: IRRITABLE BOWEL SYNDROME
     Dosage: 6 MG, UNK
     Route: 048
     Dates: start: 20040101
  2. ZELNORM [Suspect]
     Dosage: 6 MG, BID
     Route: 048
     Dates: start: 20060101, end: 20070401
  3. SEX HORMONES AND MODULATORS OF THE GENI. SYS. [Concomitant]
     Dosage: UNK, UNK
  4. PANTOLOC ^SOLVAY^ [Concomitant]
     Dosage: 40 MG, QD
  5. LIPIDIL [Concomitant]
     Dosage: 200 MG, QD
  6. PRAVASTATIN [Concomitant]
     Dosage: 20 MG, QD
  7. ASPIRIN [Concomitant]
     Dosage: UNK, UNK

REACTIONS (16)
  - CARDIAC ANEURYSM [None]
  - CEREBROVASCULAR ACCIDENT [None]
  - DISTURBANCE IN ATTENTION [None]
  - DIZZINESS [None]
  - DYSAESTHESIA [None]
  - ELECTROCARDIOGRAM ABNORMAL [None]
  - ELECTROCARDIOGRAM T WAVE ABNORMAL [None]
  - FATIGUE [None]
  - HEMIPLEGIA [None]
  - HYPOAESTHESIA [None]
  - INTRACARDIAC THROMBUS [None]
  - MEMORY IMPAIRMENT [None]
  - MENISCUS OPERATION [None]
  - PARAESTHESIA [None]
  - STRESS [None]
  - TRANSIENT ISCHAEMIC ATTACK [None]
